FAERS Safety Report 9367323 (Version 1)
Quarter: 2013Q2

REPORT INFORMATION
  Report Type: Spontaneous
  Country: US (occurrence: US)
  Receive Date: 20130625
  Receipt Date: 20130625
  Transmission Date: 20140414
  Serious: No
  Sender: FDA-Public Use
  Company Number: US-009507513-1306USA010753

PATIENT
  Age: 17 Year
  Sex: Female

DRUGS (4)
  1. NUVARING [Suspect]
     Indication: CONTRACEPTION
     Dosage: UNK
     Route: 067
     Dates: start: 20130616
  2. NUVARING [Suspect]
     Indication: MENSTRUAL CYCLE MANAGEMENT
     Dosage: UNK
     Route: 067
     Dates: start: 2013
  3. DEPAKOTE [Concomitant]
  4. CLONAZEPAM [Concomitant]

REACTIONS (3)
  - Pain [Recovered/Resolved]
  - Incorrect drug administration duration [Unknown]
  - Product quality issue [Unknown]
